FAERS Safety Report 4813412-9 (Version None)
Quarter: 2005Q4

REPORT INFORMATION
  Report Type: 
  Country: None (occurrence: None)
  Receive Date: 20051028
  Receipt Date: 20051019
  Transmission Date: 20060501
  Serious: Yes (Death)
  Sender: FDA-Public Use
  Company Number: PHBS2005JP15410

PATIENT

DRUGS (3)
  1. GLEEVEC [Suspect]
     Indication: CHRONIC MYELOID LEUKAEMIA
     Dosage: 400 MG/D
     Route: 048
     Dates: start: 20020201
  2. GLEEVEC [Suspect]
     Dosage: 200 MG/DAY
     Route: 048
     Dates: start: 20020601
  3. GLEEVEC [Suspect]
     Dosage: 300 MG/DAY
     Route: 048

REACTIONS (2)
  - HISTIOCYTOSIS HAEMATOPHAGIC [None]
  - WHITE BLOOD CELL COUNT DECREASED [None]
